FAERS Safety Report 4885960-7 (Version None)
Quarter: 2006Q1

REPORT INFORMATION
  Report Type: 
  Country: None (occurrence: None)
  Receive Date: 20060118
  Receipt Date: 20060118
  Transmission Date: 20060701
  Serious: Yes (Other)
  Sender: FDA-Public Use
  Company Number: None

PATIENT
  Age: 50 Year
  Sex: Female
  Weight: 81.6475 kg

DRUGS (2)
  1. LEVAQUIN [Suspect]
     Indication: BRONCHITIS
     Dosage: 750 MG DAY PO
     Route: 048
     Dates: start: 20060106, end: 20060115
  2. LEVAQUIN [Suspect]
     Indication: DRUG RESISTANCE
     Dosage: 750 MG DAY PO
     Route: 048
     Dates: start: 20060106, end: 20060115

REACTIONS (9)
  - AGITATION [None]
  - ARTHRALGIA [None]
  - DEPRESSION [None]
  - DIFFICULTY IN WALKING [None]
  - DYSPNOEA [None]
  - HEART RATE INCREASED [None]
  - MEMORY IMPAIRMENT [None]
  - MYALGIA [None]
  - NIGHTMARE [None]
